FAERS Safety Report 10075816 (Version 1)
Quarter: 2014Q2

REPORT INFORMATION
  Report Type: Report from Study
  Country: GB (occurrence: GB)
  Receive Date: 20140414
  Receipt Date: 20140414
  Transmission Date: 20141212
  Serious: Yes (Hospitalization)
  Sender: FDA-Public Use
  Company Number: GB-009507513-1404GBR006504

PATIENT
  Age: 76 Year
  Sex: Male

DRUGS (4)
  1. VORINOSTAT [Suspect]
     Indication: PLASMA CELL MYELOMA
     Dosage: 200 DAILY, DAY 1-3
     Route: 048
     Dates: start: 20140313, end: 20140315
  2. VORINOSTAT [Suspect]
     Dosage: 200 DAILY, DAY 8-10
     Route: 048
     Dates: start: 20140320, end: 20140322
  3. VORINOSTAT [Suspect]
     Dosage: 200 DAILY, DAY 15-17
     Route: 048
     Dates: start: 20140327, end: 20140329
  4. LENALIDOMIDE [Suspect]
     Indication: PLASMA CELL MYELOMA
     Dosage: 5 MG DAILY
     Route: 048
     Dates: start: 20140313

REACTIONS (2)
  - Epistaxis [Recovered/Resolved]
  - Anaemia [Recovered/Resolved]
